FAERS Safety Report 9819549 (Version 1)
Quarter: 2014Q1

REPORT INFORMATION
  Report Type: Spontaneous
  Country: US (occurrence: None)
  Receive Date: 20140113
  Receipt Date: 20140113
  Transmission Date: 20141002
  Serious: Yes (Hospitalization)
  Sender: FDA-Public Use
  Company Number: 2013P1022423

PATIENT
  Age: 8 Month
  Sex: Male

DRUGS (2)
  1. ACETAMINOPHEN [Suspect]
     Indication: PAIN
     Route: 054
  2. OFLAXACIN [Concomitant]

REACTIONS (11)
  - Vomiting [None]
  - Lethargy [None]
  - Decreased appetite [None]
  - Urine output decreased [None]
  - Grand mal convulsion [None]
  - Metabolic acidosis [None]
  - Liver injury [None]
  - Hepatitis [None]
  - Hepatic encephalopathy [None]
  - Toxicity to various agents [None]
  - Mouth haemorrhage [None]
